FAERS Safety Report 5959637-0 (Version None)
Quarter: 2008Q4

REPORT INFORMATION
  Report Type: 
  Country: None (occurrence: None)
  Receive Date: 20081106
  Receipt Date: 20080305
  Transmission Date: 20090506
  Serious: Yes (Other)
  Sender: FDA-Public Use
  Company Number: US200712004880

PATIENT
  Age: 49 Year
  Sex: Female

DRUGS (8)
  1. ZYPREXA [Suspect]
     Indication: ANXIETY
     Dosage: 5 MG, DAILY (1/D)
     Dates: start: 20071206, end: 20071213
  2. PROZAC [Suspect]
     Dosage: UNK , UNK, UNK 60 MG, UNK, 40 MG
     Dates: end: 20071001
  3. PROZAC [Suspect]
     Dosage: UNK , UNK, UNK 60 MG, UNK, 40 MG
     Dates: start: 20071001, end: 20071206
  4. PROZAC [Suspect]
     Dosage: UNK , UNK, UNK 60 MG, UNK, 40 MG
     Dates: start: 20071214
  5. KLONOPIN (CLONAZEPAM) UNK TO UNK [Concomitant]
  6. TOPAMAX (TOPIRAMATE) UNK TO UNK [Concomitant]
  7. SYTHROID (LEVOTHYROXINE SODIUM) UNK TO UNK [Concomitant]
  8. ASA (ACETYLSALICYLIC ACID) UNK TO UNK [Concomitant]

REACTIONS (4)
  - ABNORMAL DREAMS [None]
  - CHEST PAIN [None]
  - GRAND MAL CONVULSION [None]
  - HEADACHE [None]
